FAERS Safety Report 4469576-2 (Version None)
Quarter: 2004Q3

REPORT INFORMATION
  Report Type: 
  Country: None (occurrence: None)
  Receive Date: 20040920
  Receipt Date: 20040521
  Transmission Date: 20050211
  Serious: Yes (Other)
  Sender: FDA-Public Use
  Company Number: PHEH2004US05664

PATIENT
  Age: 81 Year
  Sex: Male

DRUGS (5)
  1. ZOMETA [Suspect]
     Dosage: 4 MG MONTHLY
  2. LUPRON [Concomitant]
  3. DEPAKOTE [Concomitant]
  4. TECHLON (PENTOXIFYLLINE) [Concomitant]
  5. CELEXA [Concomitant]

REACTIONS (1)
  - PANCYTOPENIA [None]
